FAERS Safety Report 17612652 (Version 1)
Quarter: 2020Q2

REPORT INFORMATION
  Report Type: Report from Study
  Country: KR (occurrence: KR)
  Receive Date: 20200401
  Receipt Date: 20200401
  Transmission Date: 20200713
  Serious: Yes (Death)
  Sender: FDA-Public Use
  Company Number: KR-DSJP-DSJ-2020-110402AA

PATIENT

DRUGS (3)
  1. OXIRACETAM [Concomitant]
     Active Substance: OXIRACETAM
     Indication: COGNITIVE DISORDER
     Dosage: 800 MG, QD
     Route: 048
     Dates: start: 20191216
  2. APIXABAN [Concomitant]
     Active Substance: APIXABAN
     Indication: CEREBROVASCULAR ACCIDENT
     Dosage: 2.5 MG, QD
     Route: 048
     Dates: start: 20191213
  3. EDOXABAN [Suspect]
     Active Substance: EDOXABAN TOSYLATE
     Indication: PRODUCT USED FOR UNKNOWN INDICATION
     Dosage: 30 MG, QD
     Route: 048
     Dates: start: 20191216

REACTIONS (1)
  - Death [Fatal]
